FAERS Safety Report 20893693 (Version 1)
Quarter: 2022Q2

REPORT INFORMATION
  Report Type: Spontaneous
  Country: US (occurrence: US)
  Receive Date: 20220531
  Receipt Date: 20220531
  Transmission Date: 20220721
  Serious: Yes (Hospitalization, Other)
  Sender: FDA-Public Use
  Company Number: US-AUROBINDO-AUR-APL-2022-019132

PATIENT
  Age: 57 Year
  Sex: Male

DRUGS (3)
  1. CYCLOPHOSPHAMIDE [Suspect]
     Active Substance: CYCLOPHOSPHAMIDE
     Indication: Henoch-Schonlein purpura
     Dosage: UNK
     Route: 065
  2. PREDNISONE [Suspect]
     Active Substance: PREDNISONE
     Indication: Henoch-Schonlein purpura
     Dosage: UNK
     Route: 065
  3. RITUXIMAB [Suspect]
     Active Substance: RITUXIMAB
     Indication: Henoch-Schonlein purpura
     Dosage: UNK
     Route: 065

REACTIONS (7)
  - Bartonellosis [Recovering/Resolving]
  - Optic neuritis [Recovering/Resolving]
  - Chorioretinitis [Recovering/Resolving]
  - Vitritis [Recovering/Resolving]
  - Retinal vasculitis [Recovering/Resolving]
  - Papillitis [Recovering/Resolving]
  - Central nervous system lesion [Recovering/Resolving]
